FAERS Safety Report 18294447 (Version 2)
Quarter: 2020Q4

REPORT INFORMATION
  Report Type: Other
  Country: CA (occurrence: CA)
  Receive Date: 20200922
  Receipt Date: 20201030
  Transmission Date: 20210113
  Serious: Yes (Hospitalization, Other)
  Sender: FDA-Public Use
  Company Number: CA-APOTEX-2020AP017934

PATIENT
  Sex: Female

DRUGS (2)
  1. ALENDRONATE [Suspect]
     Active Substance: ALENDRONATE SODIUM
     Indication: PRODUCT USED FOR UNKNOWN INDICATION
     Dosage: 70 MILLIGRAM, Q.WK.
     Route: 048
  2. FOSAMAX [Suspect]
     Active Substance: ALENDRONATE SODIUM
     Indication: PRODUCT USED FOR UNKNOWN INDICATION
     Dosage: 70 MILLIGRAM, Q.WK.
     Route: 048

REACTIONS (9)
  - Blood creatinine increased [Recovered/Resolved]
  - Blood phosphorus decreased [Recovered/Resolved]
  - Bone disorder [Recovered/Resolved]
  - Device failure [Recovered/Resolved]
  - Femur fracture [Recovered/Resolved]
  - Blood calcium decreased [Recovered/Resolved]
  - Fracture nonunion [Recovered/Resolved]
  - Tibia fracture [Recovered/Resolved]
  - Blood 25-hydroxycholecalciferol increased [Recovered/Resolved]
